FAERS Safety Report 6264948-8 (Version None)
Quarter: 2009Q3

REPORT INFORMATION
  Report Type: 
  Country: None (occurrence: None)
  Receive Date: 20090709
  Receipt Date: 20090709
  Transmission Date: 20100115
  Serious: No
  Sender: FDA-Public Use
  Company Number: None

PATIENT
  Sex: Female
  Weight: 57.1532 kg

DRUGS (1)
  1. CLONAZEPAM [Suspect]
     Indication: PANIC ATTACK
     Dosage: 1MG BID MORNING BEDTIME

REACTIONS (4)
  - FEAR [None]
  - FEELING JITTERY [None]
  - NERVOUSNESS [None]
  - RESPIRATORY DISORDER [None]
